FAERS Safety Report 21601796 (Version 1)
Quarter: 2022Q4

REPORT INFORMATION
  Report Type: Spontaneous
  Country: US (occurrence: None)
  Receive Date: 20221115
  Receipt Date: 20221115
  Transmission Date: 20230113
  Serious: No
  Sender: FDA-Public Use
  Company Number: None

PATIENT
  Sex: Female

DRUGS (1)
  1. RINVOQ [Suspect]
     Active Substance: UPADACITINIB
     Dosage: FREQUENCY : DAILY;?
     Route: 048
     Dates: start: 20221016

REACTIONS (9)
  - Symptom recurrence [None]
  - Pain [None]
  - Illness [None]
  - Therapy interrupted [None]
  - Pneumonia [None]
  - Cough [None]
  - Dyspnoea [None]
  - Ear disorder [None]
  - Headache [None]
